FAERS Safety Report 10173889 (Version 1)
Quarter: 2014Q2

REPORT INFORMATION
  Report Type: Spontaneous
  Country: US (occurrence: None)
  Receive Date: 20140514
  Receipt Date: 20140514
  Transmission Date: 20141212
  Serious: Yes (Life-Threatening, Disabling)
  Sender: FDA-Public Use
  Company Number: None

PATIENT
  Age: 29 Year
  Sex: Male
  Weight: 84.82 kg

DRUGS (2)
  1. FINASTERIDE [Suspect]
     Indication: ALOPECIA
     Dosage: 1/2 PILL
     Route: 048
     Dates: start: 20070331, end: 20110330
  2. FINASTERIDE [Suspect]
     Indication: BENIGN PROSTATIC HYPERPLASIA
     Dosage: 1/2 PILL
     Route: 048
     Dates: start: 20070331, end: 20110330

REACTIONS (10)
  - Loss of libido [None]
  - Erectile dysfunction [None]
  - Ejaculation disorder [None]
  - Listless [None]
  - Lethargy [None]
  - Generalised anxiety disorder [None]
  - Depression [None]
  - Cognitive disorder [None]
  - Loss of employment [None]
  - Apparent life threatening event [None]
